FAERS Safety Report 12448409 (Version 1)
Quarter: 2016Q2

REPORT INFORMATION
  Report Type: Spontaneous
  Country: US (occurrence: US)
  Receive Date: 20160608
  Receipt Date: 20160608
  Transmission Date: 20160815
  Serious: Yes (Death, Hospitalization, Disabling, Other)
  Sender: FDA-Public Use
  Company Number: US-009507513-1206USA00564

PATIENT
  Sex: Female

DRUGS (4)
  1. ALENDRONATE SODIUM. [Suspect]
     Active Substance: ALENDRONATE SODIUM
     Indication: OSTEOPOROSIS
     Dosage: 70 MG, QW
     Route: 048
     Dates: start: 2008
  2. DIDRONEL [Suspect]
     Active Substance: ETIDRONATE DISODIUM
     Indication: OSTEOPOROSIS
     Route: 048
  3. FOSAMAX [Suspect]
     Active Substance: ALENDRONATE SODIUM
     Dosage: 70 MG, QW
     Route: 048
     Dates: start: 2006, end: 2007
  4. FOSAMAX [Suspect]
     Active Substance: ALENDRONATE SODIUM
     Indication: OSTEOPOROSIS
     Dosage: UNK
     Route: 048
     Dates: start: 2002

REACTIONS (10)
  - Cerebrovascular accident [Fatal]
  - Spinal compression fracture [Unknown]
  - Hypotension [Recovered/Resolved]
  - Arthralgia [Unknown]
  - Arthritis [Unknown]
  - Hypercholesterolaemia [Unknown]
  - Back pain [Unknown]
  - Hypertension [Unknown]
  - Femur fracture [Recovered/Resolved]
  - Anaemia postoperative [Unknown]

NARRATIVE: CASE EVENT DATE: 200212
